FAERS Safety Report 18989720 (Version 5)
Quarter: 2021Q2

REPORT INFORMATION
  Report Type: Spontaneous
  Country: US (occurrence: US)
  Receive Date: 20210309
  Receipt Date: 20210520
  Transmission Date: 20210717
  Serious: No
  Sender: FDA-Public Use
  Company Number: US-JNJFOC-20210300826

PATIENT
  Age: 73 Year
  Sex: Female

DRUGS (2)
  1. CHILDRENS ZYRTEC [Suspect]
     Active Substance: CETIRIZINE HYDROCHLORIDE
     Indication: SUSPECTED COVID-19
     Dosage: 10MG/DAY
     Route: 048
     Dates: start: 202102
  2. PEPCID [Suspect]
     Active Substance: FAMOTIDINE
     Indication: SUSPECTED COVID-19
     Route: 065
     Dates: start: 202102

REACTIONS (3)
  - Suspected counterfeit product [Unknown]
  - Product use in unapproved indication [Unknown]
  - Therapeutic response unexpected [Unknown]

NARRATIVE: CASE EVENT DATE: 202102
